FAERS Safety Report 8101413-7 (Version None)
Quarter: 2012Q1

REPORT INFORMATION
  Report Type: 
  Country: None (occurrence: None)
  Receive Date: 20120129
  Receipt Date: 20110902
  Transmission Date: 20120608
  Serious: No
  Sender: FDA-Public Use
  Company Number: US-ABBOTT-11P-163-0852558-00

PATIENT
  Sex: Female
  Weight: 68.1 kg

DRUGS (4)
  1. FERGON [Concomitant]
     Indication: SUPPLEMENTATION THERAPY
  2. HUMIRA [Suspect]
     Indication: RHEUMATOID ARTHRITIS
     Dates: start: 20110501
  3. FLONASE [Concomitant]
     Indication: HYPERSENSITIVITY
  4. LUNESTA [Concomitant]
     Indication: SLEEP DISORDER THERAPY

REACTIONS (4)
  - CONTUSION [None]
  - INCORRECT ROUTE OF DRUG ADMINISTRATION [None]
  - DRUG DOSE OMISSION [None]
  - WRONG TECHNIQUE IN DRUG USAGE PROCESS [None]
